FAERS Safety Report 7479497-9 (Version None)
Quarter: 2011Q2

REPORT INFORMATION
  Report Type: 
  Country: None (occurrence: None)
  Receive Date: 20110513
  Receipt Date: 20110502
  Transmission Date: 20111010
  Serious: Yes (Other)
  Sender: FDA-Public Use
  Company Number: PHHY2011FR32398

PATIENT
  Sex: Female

DRUGS (2)
  1. EXTAVIA [Suspect]
     Indication: MULTIPLE SCLEROSIS
     Dosage: 250 UG/ML, QOD
     Route: 058
     Dates: start: 20100823, end: 20101110
  2. ACETAMINOPHEN [Concomitant]

REACTIONS (5)
  - IRRITABILITY [None]
  - ANXIETY DISORDER [None]
  - MYALGIA [None]
  - HOT FLUSH [None]
  - FATIGUE [None]
